FAERS Safety Report 5251503-1 (Version None)
Quarter: 2007Q1

REPORT INFORMATION
  Report Type: 
  Country: None (occurrence: None)
  Receive Date: 20070228
  Receipt Date: 20060518
  Transmission Date: 20070707
  Serious: No
  Sender: FDA-Public Use
  Company Number: US-GLAXOSMITHKLINE-A0606209A

PATIENT
  Age: 40 Year
  Sex: Female

DRUGS (2)
  1. LAMICTAL [Suspect]
     Dosage: 50MG PER DAY
     Route: 048
  2. SEROQUEL [Concomitant]

REACTIONS (4)
  - LIBIDO DECREASED [None]
  - ORGASM ABNORMAL [None]
  - SKIN DISCOLOURATION [None]
  - WEIGHT INCREASED [None]
